FAERS Safety Report 17219399 (Version 1)
Quarter: 2020Q1

REPORT INFORMATION
  Report Type: Spontaneous
  Country: US (occurrence: US)
  Receive Date: 20191230
  Receipt Date: 20191230
  Transmission Date: 20200409
  Serious: No
  Sender: FDA-Public Use
  Company Number: None

PATIENT
  Age: 28 Year
  Sex: Male
  Weight: 98.1 kg

DRUGS (1)
  1. LISTERINE NIGHTLY RESET ANTICAVITY FLUORIDE TWILIGHT MINT [Suspect]
     Active Substance: SODIUM FLUORIDE
     Dates: start: 20191226, end: 20191230

REACTIONS (3)
  - Dysgeusia [None]
  - Oral mucosal exfoliation [None]
  - Ageusia [None]

NARRATIVE: CASE EVENT DATE: 20191230
